FAERS Safety Report 8329339-4 (Version None)
Quarter: 2012Q2

REPORT INFORMATION
  Report Type: 
  Country: None (occurrence: None)
  Receive Date: 20120502
  Receipt Date: 20110803
  Transmission Date: 20120825
  Serious: No
  Sender: FDA-Public Use
  Company Number: US-ASTRAZENECA-2011SE46320

PATIENT
  Age: 69 Year
  Sex: Female

DRUGS (3)
  1. DECADRON [Concomitant]
  2. NORTRIPTYLINE HCL [Concomitant]
  3. FASLODEX [Suspect]
     Indication: BREAST CANCER METASTATIC
     Route: 030
     Dates: start: 20110501

REACTIONS (3)
  - ALOPECIA [None]
  - NEUROPATHY PERIPHERAL [None]
  - ARTHRALGIA [None]
